FAERS Safety Report 4690578-5 (Version None)
Quarter: 2005Q2

REPORT INFORMATION
  Report Type: 
  Country: None (occurrence: None)
  Receive Date: 20050613
  Receipt Date: 20050527
  Transmission Date: 20051028
  Serious: Yes (Hospitalization)
  Sender: FDA-Public Use
  Company Number: 204199

PATIENT
  Age: 37 Year
  Sex: Female
  Weight: 80 kg

DRUGS (6)
  1. AVONEX [Suspect]
     Indication: MULTIPLE SCLEROSIS
     Dosage: 30 UG; QW; IM
     Route: 030
     Dates: start: 20040329
  2. METHYLPREDNISOLONE  VS  PLACEBO [Concomitant]
  3. PULMICORT [Concomitant]
  4. BRICANYL [Concomitant]
  5. OXIS [Concomitant]
  6. ANTIDEPRESSANT [Concomitant]

REACTIONS (10)
  - ABORTION INDUCED [None]
  - AMNESIA [None]
  - COGNITIVE DISORDER [None]
  - DIZZINESS [None]
  - FACE INJURY [None]
  - FALL [None]
  - HYPERHIDROSIS [None]
  - LOSS OF CONSCIOUSNESS [None]
  - SYNCOPE [None]
  - UNINTENDED PREGNANCY [None]
